FAERS Safety Report 14600033 (Version 1)
Quarter: 2018Q1

REPORT INFORMATION
  Report Type: Spontaneous
  Country: JP (occurrence: JP)
  Receive Date: 20180305
  Receipt Date: 20180305
  Transmission Date: 20180509
  Serious: Yes (Other)
  Sender: FDA-Public Use
  Company Number: JP-NOVOPROD-588244

PATIENT
  Age: 50 Year
  Sex: Male
  Weight: 78 kg

DRUGS (6)
  1. VICTOZA [Suspect]
     Active Substance: LIRAGLUTIDE
     Dosage: 0.6 MG, QD
     Route: 058
     Dates: start: 201704, end: 20171206
  2. SEIBULE [Concomitant]
     Active Substance: MIGLITOL
     Indication: DIABETES MELLITUS
     Dosage: 75 MG
     Route: 048
     Dates: start: 20140912
  3. FEBURIC [Concomitant]
     Active Substance: FEBUXOSTAT
     Indication: DIABETES MELLITUS
     Dosage: 10 UNKNOWN UNIT
     Route: 048
     Dates: start: 20140912
  4. VICTOZA [Suspect]
     Active Substance: LIRAGLUTIDE
     Indication: DIABETES MELLITUS
     Dosage: 0.3 MG, QD
     Route: 058
     Dates: start: 20160715
  5. METFORMIN HYDROCHLORIDE. [Concomitant]
     Active Substance: METFORMIN HYDROCHLORIDE
     Indication: DIABETES MELLITUS
     Dosage: 250 UNKNOWN UNIT
     Route: 048
     Dates: start: 20140912
  6. CRESTOR [Concomitant]
     Active Substance: ROSUVASTATIN CALCIUM
     Indication: DIABETES MELLITUS
     Dosage: 2.5 UNKNOWN UNIT
     Route: 048
     Dates: start: 20140912

REACTIONS (1)
  - Toxic skin eruption [Recovered/Resolved]
